FAERS Safety Report 16244897 (Version 1)
Quarter: 2019Q2

REPORT INFORMATION
  Report Type: Spontaneous
  Country: MA (occurrence: MA)
  Receive Date: 20190426
  Receipt Date: 20190426
  Transmission Date: 20190711
  Serious: Yes (Other)
  Sender: FDA-Public Use
  Company Number: MA-JNJFOC-20190321655

PATIENT
  Age: 6 Decade
  Sex: Female
  Weight: 72 kg

DRUGS (4)
  1. SIMPONI [Suspect]
     Active Substance: GOLIMUMAB
     Indication: RHEUMATOID ARTHRITIS
     Route: 058
     Dates: start: 20180411, end: 20181213
  2. ISONE [Concomitant]
     Indication: RHEUMATOID ARTHRITIS
     Route: 048
     Dates: start: 20120509
  3. METHOTREXATE. [Concomitant]
     Active Substance: METHOTREXATE
     Indication: RHEUMATOID ARTHRITIS
     Route: 058
     Dates: start: 20120509
  4. ACFOL [Concomitant]
     Active Substance: FOLIC ACID
     Route: 048

REACTIONS (3)
  - Abscess [Unknown]
  - Furuncle [Recovered/Resolved]
  - Skin ulcer [Recovered/Resolved]
